FAERS Safety Report 9170328 (Version 1)
Quarter: 2013Q1

REPORT INFORMATION
  Report Type: Spontaneous
  Country: US (occurrence: None)
  Receive Date: 20130315
  Receipt Date: 20130315
  Transmission Date: 20140127
  Serious: Yes (Other)
  Sender: FDA-Public Use
  Company Number: None

PATIENT
  Age: 75 Year
  Sex: Female
  Weight: 65.77 kg

DRUGS (1)
  1. LEVOFLOXACIN [Suspect]
     Route: 048
     Dates: start: 20130304, end: 20130309

REACTIONS (12)
  - Middle insomnia [None]
  - Tremor [None]
  - Paraesthesia [None]
  - Palpitations [None]
  - Pain [None]
  - Nasal discomfort [None]
  - Pruritus [None]
  - Hyperhidrosis [None]
  - Fatigue [None]
  - Decreased appetite [None]
  - Constipation [None]
  - Diarrhoea [None]
